FAERS Safety Report 22044303 (Version 1)
Quarter: 2023Q1

REPORT INFORMATION
  Report Type: Spontaneous
  Country: PT (occurrence: PT)
  Receive Date: 20230228
  Receipt Date: 20230228
  Transmission Date: 20230417
  Serious: Yes (Other)
  Sender: FDA-Public Use
  Company Number: PT-MYLANLABS-2023M1012805

PATIENT
  Age: 11 Year
  Sex: Female

DRUGS (14)
  1. TERBINAFINE [Suspect]
     Active Substance: TERBINAFINE
     Indication: Trichophytosis
     Dosage: 2.5 MILLIGRAM/KILOGRAM, QD, ONCE A DAY
     Route: 048
  2. TERBINAFINE [Suspect]
     Active Substance: TERBINAFINE
     Indication: Evidence based treatment
  3. TERBINAFINE [Suspect]
     Active Substance: TERBINAFINE
     Indication: Dermatophytosis
  4. AMOXICILLIN\CLAVULANIC ACID [Suspect]
     Active Substance: AMOXICILLIN\CLAVULANIC ACID
     Indication: Bullous impetigo
     Dosage: UNK
     Route: 065
  5. FUSIDIC ACID [Suspect]
     Active Substance: FUSIDIC ACID
     Indication: Bullous impetigo
     Dosage: UNK
     Route: 061
  6. CICLOPIROX OLAMINE [Suspect]
     Active Substance: CICLOPIROX OLAMINE
     Indication: Trichophytosis
     Dosage: UNK
     Route: 061
  7. CICLOPIROX OLAMINE [Suspect]
     Active Substance: CICLOPIROX OLAMINE
     Indication: Dermatophytosis
  8. CICLOPIROX OLAMINE [Suspect]
     Active Substance: CICLOPIROX OLAMINE
     Indication: Evidence based treatment
  9. DIFLUCORTOLONE VALERATE [Suspect]
     Active Substance: DIFLUCORTOLONE VALERATE
     Indication: Trichophytosis
     Dosage: UNK
     Route: 065
  10. DIFLUCORTOLONE VALERATE [Suspect]
     Active Substance: DIFLUCORTOLONE VALERATE
     Indication: Evidence based treatment
  11. DIFLUCORTOLONE VALERATE [Suspect]
     Active Substance: DIFLUCORTOLONE VALERATE
     Indication: Dermatophytosis
  12. ISOCONAZOLE [Suspect]
     Active Substance: ISOCONAZOLE
     Indication: Trichophytosis
     Dosage: UNK
     Route: 065
  13. ISOCONAZOLE [Suspect]
     Active Substance: ISOCONAZOLE
     Indication: Dermatophytosis
  14. ISOCONAZOLE [Suspect]
     Active Substance: ISOCONAZOLE
     Indication: Evidence based treatment

REACTIONS (2)
  - Abdominal pain [Recovered/Resolved]
  - Condition aggravated [Unknown]
